FAERS Safety Report 5425975-3 (Version None)
Quarter: 2007Q3

REPORT INFORMATION
  Report Type: 
  Country: None (occurrence: None)
  Receive Date: 20070827
  Receipt Date: 20070820
  Transmission Date: 20080115
  Serious: Yes (Life-Threatening, Hospitalization, Other)
  Sender: FDA-Public Use
  Company Number: DE-NOVOPROD-266525

PATIENT

DRUGS (23)
  1. NOVOSEVEN [Suspect]
     Indication: TRAUMATIC HAEMORRHAGE
     Dosage: UNK, UNK
     Route: 042
     Dates: start: 20070809, end: 20070809
  2. NOR-ADRENALIN [Concomitant]
     Dosage: 5 MG, UNK
     Route: 042
     Dates: start: 20070809
  3. FENTANYL [Concomitant]
     Indication: ANALGESIA
     Dosage: 1.5 MG, UNK
     Route: 042
     Dates: start: 20070809
  4. DORMICUM                           /00036201/ [Concomitant]
     Indication: ANAESTHESIA
     Dosage: 90 MG, UNK
     Route: 042
     Dates: end: 20070810
  5. LASIX [Concomitant]
     Indication: PROPHYLAXIS
     Route: 042
     Dates: start: 20070809, end: 20070809
  6. PANCURONIUM [Concomitant]
     Indication: RELAXATION THERAPY
     Dosage: 8 MG, UNK
     Route: 042
     Dates: start: 20070805, end: 20070809
  7. ESMERON [Concomitant]
     Indication: RELAXATION THERAPY
     Dosage: 50 MG, UNK
     Route: 042
     Dates: start: 20070805, end: 20070809
  8. PROPOFOL [Concomitant]
     Indication: SEDATION
     Dosage: 1000 MG, UNK
     Route: 042
     Dates: start: 20070805, end: 20070809
  9. PROPOFOL [Concomitant]
     Dosage: 1000 MG, UNK
     Route: 042
     Dates: start: 20070809
  10. NOREPINEPHRINE BITARTRATE [Concomitant]
     Dosage: 5 MG, UNK
     Route: 042
     Dates: start: 20070809
  11. DOBUTAMIN [Concomitant]
     Indication: CARDIOVASCULAR EVENT PROPHYLAXIS
     Dosage: 250 MG, UNK
     Route: 042
     Dates: start: 20070809
  12. NEXIUM [Concomitant]
     Indication: PROPHYLAXIS AGAINST GASTROINTESTINAL ULCER
     Dosage: 40 MG, UNK
     Route: 042
     Dates: start: 20070810
  13. MIDAZOLAM HCL [Concomitant]
     Dosage: 100 MG, UNK
     Route: 042
     Dates: start: 20070810
  14. PROSTAVASIN                        /00501501/ [Concomitant]
     Dosage: 40 MG, UNK
     Dates: start: 20070814
  15. MUCOSOLVAN                         /00546001/ [Concomitant]
     Dosage: 1000 MG, UNK
     Route: 042
     Dates: start: 20070811
  16. HEPARIN [Concomitant]
     Indication: THROMBOSIS PROPHYLAXIS
     Dosage: 5000 IE, UNK
     Route: 042
     Dates: start: 20070815
  17. AMIDARONE [Concomitant]
     Dosage: 300 MG, QD
     Route: 042
     Dates: start: 20070815
  18. BELOC                              /00376902/ [Concomitant]
     Indication: PROPHYLAXIS
     Dosage: 25 MG, UNK
     Route: 042
     Dates: start: 20070815
  19. ACC                                /00082801/ [Concomitant]
     Dosage: 300 MG, QD
     Route: 042
     Dates: start: 20070815
  20. TAZOBAC                            /01173601/ [Concomitant]
     Dosage: 4.5 G, QD
     Route: 042
     Dates: start: 20070815
  21. ATROVENT [Concomitant]
     Dosage: .025 %, QD
     Route: 045
     Dates: start: 20070811
  22. ATROPINSULFAT [Concomitant]
     Dosage: .5 UNK, QD
     Route: 042
     Dates: start: 20070809
  23. ADRENALIN                          /00003901/ [Concomitant]
     Route: 042
     Dates: start: 20070809, end: 20070809

REACTIONS (7)
  - ACUTE RESPIRATORY DISTRESS SYNDROME [None]
  - CEREBRAL HAEMATOMA [None]
  - CYANOSIS [None]
  - EMBOLISM [None]
  - RENAL FAILURE ACUTE [None]
  - THROMBOSIS [None]
  - VENOUS THROMBOSIS [None]
